FAERS Safety Report 18609034 (Version 1)
Quarter: 2020Q4

REPORT INFORMATION
  Report Type: Spontaneous
  Country: US (occurrence: US)
  Receive Date: 20201214
  Receipt Date: 20201214
  Transmission Date: 20210114
  Serious: Yes (Hospitalization, Other)
  Sender: FDA-Public Use
  Company Number: US-BEH-2020125308

PATIENT
  Age: 76 Year
  Sex: Female

DRUGS (4)
  1. HIZENTRA [Suspect]
     Active Substance: HUMAN IMMUNOGLOBULIN G
     Indication: ASTHMA
     Dosage: 10 GRAM, QW
     Route: 058
     Dates: start: 2018
  2. BREO ELLIPTA [Concomitant]
     Active Substance: FLUTICASONE FUROATE\VILANTEROL TRIFENATATE
     Route: 065
  3. HIZENTRA [Suspect]
     Active Substance: HUMAN IMMUNOGLOBULIN G
     Dosage: UNK
     Route: 058
  4. LATANOPROST. [Concomitant]
     Active Substance: LATANOPROST
     Route: 065

REACTIONS (6)
  - Off label use [Unknown]
  - COVID-19 [Unknown]
  - Surgery [Unknown]
  - No adverse event [Unknown]
  - Gastrointestinal stoma complication [Unknown]
  - Therapy cessation [Unknown]

NARRATIVE: CASE EVENT DATE: 202011
